FAERS Safety Report 25471560 (Version 1)
Quarter: 2025Q2

REPORT INFORMATION
  Report Type: Report from Study
  Country: NL (occurrence: NL)
  Receive Date: 20250624
  Receipt Date: 20250624
  Transmission Date: 20250717
  Serious: Yes (Death, Other)
  Sender: AUROBINDO
  Company Number: NL-SA-2020SA256608

PATIENT
  Age: 83 Year
  Sex: Male

DRUGS (4)
  1. PREDNISONE [Suspect]
     Active Substance: PREDNISONE
     Indication: Cryoglobulinaemia
     Dosage: 15 MILLIGRAM, ONCE A DAY (SLOWLY TAPERED DAILY DOSE OF 15 MG)
     Route: 065
  2. PREDNISONE [Suspect]
     Active Substance: PREDNISONE
     Indication: Glomerulonephritis
     Dosage: 60 MILLIGRAM, ONCE A DAY
     Route: 065
  3. PREDNISONE [Suspect]
     Active Substance: PREDNISONE
     Indication: Monoclonal gammopathy
  4. PREDNISONE [Suspect]
     Active Substance: PREDNISONE
     Indication: Cutaneous vasculitis

REACTIONS (4)
  - Proteinuria [Fatal]
  - Rebound effect [Fatal]
  - Cryoglobulinaemia [Fatal]
  - Glomerulonephritis [Fatal]
